FAERS Safety Report 5847744-2 (Version None)
Quarter: 2008Q3

REPORT INFORMATION
  Report Type: 
  Country: None (occurrence: None)
  Receive Date: 20080814
  Receipt Date: 20080728
  Transmission Date: 20090109
  Serious: Yes (Death)
  Sender: FDA-Public Use
  Company Number: 2008S1013346

PATIENT
  Sex: 0

DRUGS (8)
  1. CISPLATIN [Suspect]
     Indication: GERM CELL CANCER
     Dosage: 50 MG
     Dates: start: 19980730, end: 19980731
  2. ETOPOSIDE [Suspect]
     Indication: GERM CELL CANCER
     Dosage: 90 MG/M2
     Dates: start: 19980729, end: 19980801
  3. METHOTREXATE [Suspect]
     Indication: GERM CELL CANCER
     Dates: start: 19980729, end: 19980729
  4. DACTINOMYCIN [Suspect]
     Indication: GERM CELL CANCER
     Dosage: 1.6 MG/M2; INTRAVENOUS
     Route: 042
     Dates: start: 19980729, end: 19980729
  5. ACETAZOLAMIDE [Concomitant]
  6. DEXTROSE [Concomitant]
  7. FILGRASTIM (FILGRASTIM) [Concomitant]
  8. LEUCOVORIN CALCIUM [Concomitant]

REACTIONS (2)
  - FEBRILE NEUTROPENIA [None]
  - INTRA-ABDOMINAL HAEMORRHAGE [None]
